FAERS Safety Report 21838057 (Version 9)
Quarter: 2023Q1

REPORT INFORMATION
  Report Type: Spontaneous
  Country: BR (occurrence: BR)
  Receive Date: 20230109
  Receipt Date: 20230215
  Transmission Date: 20230417
  Serious: No
  Sender: FDA-Public Use
  Company Number: BR-PFIZER INC-PV202200134029

PATIENT
  Sex: Male

DRUGS (1)
  1. CAVERJECT [Suspect]
     Active Substance: ALPROSTADIL
     Dosage: UNK

REACTIONS (6)
  - Injury associated with device [Unknown]
  - Needle issue [Unknown]
  - Injection site haemorrhage [Unknown]
  - Multiple use of single-use product [Unknown]
  - Product use complaint [Unknown]
  - Incorrect dose administered [Unknown]
